FAERS Safety Report 17790703 (Version 1)
Quarter: 2020Q2

REPORT INFORMATION
  Report Type: Spontaneous
  Country: US (occurrence: US)
  Receive Date: 20200514
  Receipt Date: 20200514
  Transmission Date: 20200714
  Serious: Yes (Hospitalization)
  Sender: FDA-Public Use
  Company Number: None

PATIENT
  Age: 24 Year
  Sex: Male

DRUGS (8)
  1. CALCIUM [Concomitant]
     Active Substance: CALCIUM
  2. IMATINIB. [Suspect]
     Active Substance: IMATINIB MESYLATE
     Indication: HAEMOPHAGOCYTIC LYMPHOHISTIOCYTOSIS
     Route: 048
     Dates: start: 20200317
  3. CARVEDILOL. [Concomitant]
     Active Substance: CARVEDILOL
  4. FASENRA [Concomitant]
     Active Substance: BENRALIZUMAB
  5. CROMOLYN [Concomitant]
     Active Substance: CROMOLYN
  6. LORAZEPAM. [Concomitant]
     Active Substance: LORAZEPAM
  7. WARFARIN [Concomitant]
     Active Substance: WARFARIN
  8. VITAMIN D3 [Concomitant]
     Active Substance: CHOLECALCIFEROL

REACTIONS (1)
  - Thrombosis [None]

NARRATIVE: CASE EVENT DATE: 20200321
